FAERS Safety Report 7643550-7 (Version None)
Quarter: 2011Q3

REPORT INFORMATION
  Report Type: 
  Country: None (occurrence: None)
  Receive Date: 20110729
  Receipt Date: 20110721
  Transmission Date: 20111222
  Serious: Yes (Hospitalization)
  Sender: FDA-Public Use
  Company Number: US-JNJFOC-20110709669

PATIENT
  Sex: Female
  Weight: 60.8 kg

DRUGS (23)
  1. LYRICA [Concomitant]
     Route: 065
  2. DURAGESIC-100 [Suspect]
     Indication: PAIN
     Route: 062
  3. ROCEPHIN [Concomitant]
     Route: 065
  4. NITROFURANTOIN [Concomitant]
     Route: 065
  5. LACOSAMIDE [Concomitant]
     Route: 065
  6. FOLIC ACID [Concomitant]
     Route: 065
  7. POTASSIUM CHLORIDE [Concomitant]
     Route: 065
  8. LIDODERM [Concomitant]
     Route: 065
  9. COLACE [Concomitant]
     Route: 065
  10. MIDODRINE HYDROCHLORIDE [Concomitant]
     Route: 065
  11. FOSAMAX [Concomitant]
     Route: 065
  12. SUPRAX [Concomitant]
     Route: 065
  13. MULTI-VITAMINS [Concomitant]
     Route: 065
  14. KEPPRA [Concomitant]
     Route: 065
  15. CELEXA [Concomitant]
     Route: 065
  16. SYNTHROID [Concomitant]
     Route: 065
  17. LIDODERM [Concomitant]
     Route: 065
  18. ZOFRAN [Concomitant]
     Route: 065
  19. PRILOSEC [Concomitant]
     Route: 065
  20. TYLENOL-500 [Concomitant]
     Route: 065
  21. DILANTIN [Concomitant]
     Route: 065
  22. ASPIRIN [Concomitant]
     Route: 065
  23. HEPARIN [Concomitant]
     Route: 065

REACTIONS (2)
  - FALL [None]
  - INTENTIONAL DRUG MISUSE [None]
